FAERS Safety Report 4285731-9 (Version None)
Quarter: 2004Q1

REPORT INFORMATION
  Report Type: 
  Country: None (occurrence: None)
  Receive Date: 20040203
  Receipt Date: 20040120
  Transmission Date: 20041129
  Serious: Yes (Death)
  Sender: FDA-Public Use
  Company Number: 2004IM000007

PATIENT
  Age: 62 Year
  Sex: Female

DRUGS (1)
  1. ACTIMMUNE [Suspect]
     Indication: INTERSTITIAL LUNG DISEASE
     Dosage: 200 UG; TIW; SUBCUTANEOUS
     Route: 058
     Dates: start: 20030201, end: 20031229

REACTIONS (1)
  - SUDDEN DEATH [None]
